FAERS Safety Report 24235395 (Version 1)
Quarter: 2024Q3

REPORT INFORMATION
  Report Type: Report from Study
  Country: US (occurrence: US)
  Receive Date: 20240821
  Receipt Date: 20240821
  Transmission Date: 20241017
  Serious: Yes (Other)
  Sender: ABBVIE
  Company Number: US-ABBVIE-5825246

PATIENT
  Age: 69 Year
  Sex: Male

DRUGS (1)
  1. SKYRIZI [Suspect]
     Active Substance: RISANKIZUMAB-RZAA
     Indication: Crohn^s disease
     Route: 058
     Dates: start: 2023

REACTIONS (7)
  - Loss of consciousness [Unknown]
  - Dementia [Unknown]
  - Faeces hard [Unknown]
  - Multiple system atrophy [Unknown]
  - Parkinson^s disease [Unknown]
  - Faeces discoloured [Unknown]
  - Haematochezia [Unknown]

NARRATIVE: CASE EVENT DATE: 20231003
